FAERS Safety Report 8066433-X (Version None)
Quarter: 2012Q1

REPORT INFORMATION
  Report Type: 
  Country: None (occurrence: None)
  Receive Date: 20120124
  Receipt Date: 20120113
  Transmission Date: 20120608
  Serious: Yes (Hospitalization)
  Sender: FDA-Public Use
  Company Number: JP-VERTEX PHARMACEUTICALS INC.-AE-2012-000701

PATIENT
  Age: 69 Year
  Sex: Female

DRUGS (9)
  1. REBETOL [Concomitant]
     Indication: HEPATITIS C
     Route: 048
     Dates: start: 20111206, end: 20120108
  2. SELEBEX [Concomitant]
     Route: 048
  3. DIOVAN [Concomitant]
     Route: 048
  4. TELAVIC (TELAPREVIR) [Suspect]
     Indication: HEPATITIS C
     Dates: start: 20111206, end: 20120108
  5. PEGINTERFERON ALFA-2A [Concomitant]
     Indication: HEPATITIS C
     Route: 051
     Dates: start: 20111206
  6. LOCHOLEST [Concomitant]
     Route: 048
  7. AMLODIPINE [Concomitant]
     Route: 048
  8. DOGMATYL [Concomitant]
     Route: 048
  9. ALLOPURINOL [Concomitant]
     Route: 048
     Dates: end: 20120109

REACTIONS (4)
  - PYREXIA [None]
  - BLOOD URIC ACID INCREASED [None]
  - ERYTHEMA MULTIFORME [None]
  - NAUSEA [None]
